FAERS Safety Report 9056216 (Version 1)
Quarter: 2013Q1

REPORT INFORMATION
  Report Type: Spontaneous
  Country: US (occurrence: US)
  Receive Date: 20130205
  Receipt Date: 20130205
  Transmission Date: 20140127
  Serious: Yes (Other)
  Sender: FDA-Public Use
  Company Number: US-BAYER-2013-013589

PATIENT
  Age: 44 Year
  Sex: Female

DRUGS (5)
  1. BEYAZ [Suspect]
  2. YAZ [Suspect]
  3. LABETALOL [Concomitant]
     Route: 048
  4. CLONIDINE [Concomitant]
     Route: 048
  5. NORVASC [Concomitant]
     Route: 048

REACTIONS (1)
  - Deep vein thrombosis [None]
